FAERS Safety Report 4677256-3 (Version None)
Quarter: 2005Q2

REPORT INFORMATION
  Report Type: 
  Country: None (occurrence: None)
  Receive Date: 20050526
  Receipt Date: 20050512
  Transmission Date: 20051028
  Serious: Yes (Hospitalization)
  Sender: FDA-Public Use
  Company Number: DSA_25800_2005

PATIENT
  Age: 85 Year
  Sex: Male

DRUGS (6)
  1. TEMESTA [Suspect]
     Dosage: 1 MG Q DAY PO
     Route: 048
     Dates: end: 20041015
  2. ALLOPURINOL [Suspect]
     Dosage: 100 MG 1 DAY PO
     Route: 048
     Dates: end: 20041015
  3. PLAVIX [Suspect]
     Dosage: 75 MG Q DAY PO
     Route: 048
     Dates: end: 20041015
  4. ZYPREXA [Suspect]
     Dosage: 5 MG Q DAY PO
     Route: 048
     Dates: end: 20041015
  5. IMOVANE [Concomitant]
  6. ZOCOR [Concomitant]

REACTIONS (5)
  - ABNORMAL BEHAVIOUR [None]
  - CONFUSIONAL STATE [None]
  - DISORIENTATION [None]
  - ENCEPHALOPATHY [None]
  - HYPERREFLEXIA [None]
